FAERS Safety Report 8247496-5 (Version None)
Quarter: 2012Q1

REPORT INFORMATION
  Report Type: 
  Country: None (occurrence: None)
  Receive Date: 20120316
  Receipt Date: 20081218
  Transmission Date: 20120608
  Serious: Yes (Other)
  Sender: FDA-Public Use
  Company Number: PHEH2008US11240

PATIENT
  Sex: Male

DRUGS (2)
  1. ACE INHIBITOR NOS (NO INGREDIENTS/SUBSTANCES) [Concomitant]
  2. TEKTURNA [Suspect]
     Indication: HYPERTENSION
     Dosage: 150 MG, QD

REACTIONS (1)
  - HYPERKALAEMIA [None]
